FAERS Safety Report 11010299 (Version 1)
Quarter: 2015Q2

REPORT INFORMATION
  Report Type: Spontaneous
  Country: IN (occurrence: IN)
  Receive Date: 20150410
  Receipt Date: 20150410
  Transmission Date: 20150821
  Serious: Yes (Life-Threatening, Other)
  Sender: FDA-Public Use
  Company Number: IN-WATSON-2015-07286

PATIENT
  Age: 12 Year
  Sex: Male
  Weight: 42 kg

DRUGS (3)
  1. NORMAL SALINE [Concomitant]
     Active Substance: SODIUM CHLORIDE
     Indication: MEDICATION DILUTION
     Dosage: UNK
     Route: 042
  2. FENTANYL (UNKNOWN) [Suspect]
     Active Substance: FENTANYL
     Indication: PROCEDURAL ANXIETY
     Dosage: 500 ?G, TOTAL
     Route: 042
  3. MIDAZOLAM [Suspect]
     Active Substance: MIDAZOLAM\MIDAZOLAM HYDROCHLORIDE
     Indication: PROCEDURAL ANXIETY
     Dosage: 1 MG, TOTAL
     Route: 042

REACTIONS (8)
  - Cough [Recovered/Resolved]
  - Respiratory arrest [Recovered/Resolved]
  - Bradycardia [Recovered/Resolved]
  - Drug-disease interaction [Recovered/Resolved]
  - Arteriovenous malformation [Recovered/Resolved]
  - Condition aggravated [Recovered/Resolved]
  - Upper airway obstruction [Recovered/Resolved]
  - Hypoxia [Recovered/Resolved]
